FAERS Safety Report 5672807-4 (Version None)
Quarter: 2008Q1

REPORT INFORMATION
  Report Type: 
  Country: None (occurrence: None)
  Receive Date: 20080319
  Receipt Date: 20071206
  Transmission Date: 20080703
  Serious: No
  Sender: FDA-Public Use
  Company Number: US-KINGPHARMUSA00001-K200701581

PATIENT

DRUGS (4)
  1. ALTACE [Suspect]
     Indication: BLOOD PRESSURE INCREASED
     Dosage: 5 MG, QD
     Route: 048
     Dates: start: 20071101, end: 20071101
  2. ALTACE [Suspect]
     Dosage: 10 MG, QD
     Route: 048
     Dates: start: 20071101
  3. SENNA-GEN [Concomitant]
     Indication: CONSTIPATION
     Dosage: OCCASIONALLY
     Route: 048
  4. TYLENOL (CAPLET) [Concomitant]
     Indication: HEADACHE
     Dosage: 500 MG, PRN
     Route: 048

REACTIONS (9)
  - COUGH [None]
  - DISCOMFORT [None]
  - DIZZINESS [None]
  - DIZZINESS POSTURAL [None]
  - HEADACHE [None]
  - INSOMNIA [None]
  - MUSCULOSKELETAL PAIN [None]
  - NAUSEA [None]
  - PAIN [None]
